FAERS Safety Report 5580347-6 (Version None)
Quarter: 2008Q1

REPORT INFORMATION
  Report Type: 
  Country: None (occurrence: None)
  Receive Date: 20080103
  Receipt Date: 20071219
  Transmission Date: 20080703
  Serious: Yes (Other)
  Sender: FDA-Public Use
  Company Number: FR-AMGEN-US257654

PATIENT

DRUGS (2)
  1. ENBREL [Suspect]
     Indication: DRUG USE FOR UNKNOWN INDICATION
     Dosage: UNKNOWN
     Route: 058
     Dates: start: 20070101, end: 20070101
  2. NEXEN [Suspect]
     Dosage: UNKNOWN
     Route: 048
     Dates: end: 20070101

REACTIONS (1)
  - CYTOLYTIC HEPATITIS [None]
